FAERS Safety Report 19932873 (Version 1)
Quarter: 2021Q4

REPORT INFORMATION
  Report Type: Spontaneous
  Country: US (occurrence: US)
  Receive Date: 20211007
  Receipt Date: 20211007
  Transmission Date: 20220303
  Serious: Yes (Other)
  Sender: FDA-Public Use
  Company Number: None

PATIENT
  Age: 61 Year
  Sex: Female
  Weight: 93.6 kg

DRUGS (18)
  1. TALTZ [Suspect]
     Active Substance: IXEKIZUMAB
     Indication: Psoriatic arthropathy
     Dosage: QUANTITY:2 INJECTION(S);OTHER FREQUENCY:EVERY 2 WEEKS;OTHER ROUTE:SUBCUTANEOUS INJECTION
     Dates: start: 20210312, end: 20210326
  2. HYDROCHLOROTHIAZIDE [Concomitant]
     Active Substance: HYDROCHLOROTHIAZIDE
  3. KLONOPIN [Concomitant]
     Active Substance: CLONAZEPAM
  4. COSENTYX [Concomitant]
     Active Substance: SECUKINUMAB
  5. ZETIA [Concomitant]
     Active Substance: EZETIMIBE
  6. FENOFIBRATE [Concomitant]
     Active Substance: FENOFIBRATE
  7. ROBAXIN [Concomitant]
     Active Substance: METHOCARBAMOL
  8. PAXIL [Concomitant]
     Active Substance: PAROXETINE HYDROCHLORIDE
  9. POTASSIUM CITRATE [Concomitant]
     Active Substance: POTASSIUM CITRATE
  10. CELEBREX [Concomitant]
     Active Substance: CELECOXIB
  11. XIIDRA [Concomitant]
     Active Substance: LIFITEGRAST
  12. DICLOFENOC GEL [Concomitant]
  13. DEVICE [Concomitant]
     Active Substance: DEVICE
  14. CLARITIN [Concomitant]
     Active Substance: LORATADINE
  15. NASONEX [Concomitant]
     Active Substance: MOMETASONE FUROATE
  16. VITAMIN D [Concomitant]
     Active Substance: VITAMIN D NOS
  17. VITAMIN B12 [Concomitant]
     Active Substance: CYANOCOBALAMIN
  18. UNSPECIFIED INGREDIENT [Concomitant]
     Active Substance: UNSPECIFIED INGREDIENT

REACTIONS (2)
  - Intestinal haemorrhage [None]
  - Colitis ulcerative [None]

NARRATIVE: CASE EVENT DATE: 20210326
